FAERS Safety Report 10641492 (Version 2)
Quarter: 2015Q1

REPORT INFORMATION
  Report Type: Spontaneous
  Country: HU (occurrence: HU)
  Receive Date: 20141209
  Receipt Date: 20150210
  Transmission Date: 20150720
  Serious: No
  Sender: FDA-Public Use
  Company Number: HU-PFIZER INC-2014334765

PATIENT
  Age: 68 Year
  Sex: Female

DRUGS (4)
  1. DALACIN [Suspect]
     Active Substance: CLINDAMYCIN\CLINDAMYCIN PHOSPHATE
     Indication: PULPITIS DENTAL
     Dosage: 300 MG, 2X/DAY
     Dates: start: 201411, end: 2014
  2. SYNCUMAR [Suspect]
     Active Substance: ACENOCOUMAROL
     Dosage: UNK
  3. METOPROLOL Z HEXAL [Concomitant]
     Dosage: UNK
  4. NORMODIPINE [Concomitant]
     Dosage: UNK

REACTIONS (1)
  - Epistaxis [Recovered/Resolved]

NARRATIVE: CASE EVENT DATE: 2014
